FAERS Safety Report 8615189-8 (Version None)
Quarter: 2012Q3

REPORT INFORMATION
  Report Type: 
  Country: None (occurrence: None)
  Receive Date: 20120823
  Receipt Date: 20120817
  Transmission Date: 20120928
  Serious: Yes (Other)
  Sender: FDA-Public Use
  Company Number: JP-CELGENEUS-087-21880-11043478

PATIENT
  Sex: Male

DRUGS (46)
  1. REVLIMID [Suspect]
     Indication: MULTIPLE MYELOMA
     Dosage: 10 MILLIGRAM
     Route: 048
     Dates: start: 20101203, end: 20101223
  2. URIEF [Concomitant]
     Dosage: 4 MILLIGRAM
     Route: 048
     Dates: start: 20110622
  3. LEUPROLIDE ACETATE [Concomitant]
     Dosage: 3.75 MILLIGRAM
     Route: 058
     Dates: start: 20101227, end: 20101227
  4. LEUPROLIDE ACETATE [Concomitant]
     Dosage: 3.75 MILLIGRAM
     Route: 058
     Dates: start: 20110202, end: 20110202
  5. FAMOTIDINE [Concomitant]
     Indication: PROPHYLAXIS
     Dosage: 20 MILLIGRAM
     Route: 048
     Dates: start: 20110427
  6. MYSER [Concomitant]
     Route: 061
     Dates: start: 20100927
  7. DEXAMETHASONE ACETATE [Suspect]
     Indication: MULTIPLE MYELOMA
     Dosage: 40 MILLIGRAM
     Route: 048
     Dates: start: 20101203, end: 20101203
  8. MAGLAX [Concomitant]
     Dosage: 660 MILLIGRAM
     Route: 048
     Dates: start: 20110302
  9. URIEF [Concomitant]
     Dosage: 8 MILLIGRAM
     Route: 048
     Dates: start: 20110302
  10. LASIX [Concomitant]
     Indication: MULTIPLE MYELOMA
     Dosage: 10 MILLIGRAM
     Route: 041
     Dates: start: 20101210, end: 20101210
  11. PRIMPERAN TAB [Concomitant]
     Indication: PROPHYLAXIS
     Dosage: 10 MILLIGRAM
     Route: 041
     Dates: start: 20101211, end: 20101211
  12. DEXAMETHASONE ACETATE [Suspect]
     Dosage: 40 MILLIGRAM
     Route: 048
     Dates: start: 20101210, end: 20101210
  13. DEXAMETHASONE ACETATE [Suspect]
     Dosage: 40 MILLIGRAM
     Route: 048
     Dates: start: 20110105, end: 20110106
  14. HOKUNALIN:TAPE [Concomitant]
     Dosage: 2 MILLIGRAM
     Route: 061
     Dates: start: 20110302
  15. LANSOPRAZOLE [Concomitant]
     Indication: PROPHYLAXIS
     Dosage: 30 MILLIGRAM
     Route: 048
     Dates: start: 20101203
  16. LANSOPRAZOLE [Concomitant]
     Indication: MULTIPLE MYELOMA
     Dosage: 30 MILLIGRAM
     Route: 048
     Dates: start: 20110302
  17. LENDORMIN D [Concomitant]
     Dosage: .25 MILLIGRAM
     Route: 048
     Dates: start: 20081115
  18. REVLIMID [Suspect]
     Dosage: 10 MILLIGRAM
     Route: 048
     Dates: start: 20110105, end: 20110118
  19. REVLIMID [Suspect]
     Dosage: 10 MILLIGRAM
     Route: 048
     Dates: start: 20110202, end: 20110215
  20. REVLIMID [Suspect]
     Dosage: 10 MILLIGRAM
     Route: 048
     Dates: start: 20110330, end: 20110413
  21. REVLIMID [Suspect]
     Dosage: 10 MILLIGRAM
     Route: 048
     Dates: start: 20110622, end: 20110627
  22. HOKUNALIN:TAPE [Concomitant]
     Route: 061
     Dates: start: 20110105
  23. SPIRIVA [Concomitant]
     Dosage: 18 MICROGRAM
     Route: 055
     Dates: start: 20110302
  24. ENSURE [Concomitant]
     Indication: MULTIPLE MYELOMA
     Dosage: 750 MILLILITER
     Route: 048
     Dates: start: 20110608
  25. REVLIMID [Suspect]
     Dosage: 10 MILLIGRAM
     Route: 048
     Dates: start: 20110608, end: 20110613
  26. DEXAMETHASONE ACETATE [Suspect]
     Dosage: 40 MILLIGRAM
     Route: 048
     Dates: start: 20110302, end: 20110305
  27. HOKUNALIN:TAPE [Concomitant]
     Dosage: 2 MILLIGRAM
     Route: 061
     Dates: start: 20090209
  28. ALLOPURINOL [Concomitant]
     Dosage: 100 MILLIGRAM
     Route: 048
     Dates: start: 20060622
  29. PROPETO [Concomitant]
     Route: 061
     Dates: start: 20101115
  30. REVLIMID [Suspect]
     Dosage: 10 MILLIGRAM
     Route: 048
     Dates: start: 20110302, end: 20110315
  31. DEXAMETHASONE ACETATE [Suspect]
     Dosage: 40 MILLIGRAM
     Route: 048
     Dates: start: 20101215, end: 20101215
  32. URIEF [Concomitant]
     Indication: PROSTATE CANCER
     Dosage: 8 MILLIGRAM
     Route: 048
     Dates: start: 20091208
  33. SPIRIVA [Concomitant]
     Dosage: 18 MICROGRAM
     Route: 055
     Dates: start: 20090203
  34. SPIRIVA [Concomitant]
     Route: 055
     Dates: start: 20110105
  35. ASPIRIN [Concomitant]
     Indication: PROPHYLAXIS
     Dosage: 100 MILLIGRAM
     Route: 048
     Dates: start: 20101203, end: 20110201
  36. ASPIRIN [Concomitant]
     Indication: MULTIPLE MYELOMA
  37. ARICEPT [Concomitant]
     Dosage: 5 MILLIGRAM
     Route: 048
     Dates: start: 20110622
  38. ZINC OXIDE SIMPLE OINTMENT [Concomitant]
     Route: 061
     Dates: start: 20100927, end: 20101024
  39. REVLIMID [Suspect]
     Dosage: 10 MILLIGRAM
     Route: 048
     Dates: start: 20110525, end: 20110531
  40. DEXAMETHASONE ACETATE [Suspect]
     Dosage: 40 MILLIGRAM
     Route: 048
     Dates: start: 20110202, end: 20110203
  41. DEXAMETHASONE ACETATE [Suspect]
     Dosage: 40 MILLIGRAM
     Route: 048
     Dates: start: 20110330, end: 20110331
  42. MAGLAX [Concomitant]
     Dosage: 660 MILLIGRAM
     Route: 048
     Dates: start: 20081107
  43. ARICEPT [Concomitant]
     Indication: DEMENTIA ALZHEIMER'S TYPE
     Dosage: 3 MILLIGRAM
     Route: 048
     Dates: start: 20110318
  44. LENDORMIN D [Concomitant]
     Dosage: .25 MILLIGRAM
     Route: 048
     Dates: start: 20110302
  45. CIPROFLOXACIN HCL [Concomitant]
     Dosage: 600 MILLIGRAM
     Route: 048
     Dates: start: 20110119, end: 20110125
  46. CASODEX [Concomitant]
     Indication: PROSTATE CANCER
     Route: 065
     Dates: start: 20080801

REACTIONS (14)
  - URINARY RETENTION [None]
  - NASOPHARYNGITIS [None]
  - NEUTROPENIA [None]
  - CONSTIPATION [None]
  - UPPER RESPIRATORY TRACT INFECTION [None]
  - DELIRIUM [None]
  - ANAEMIA [None]
  - RASH [None]
  - PERFORMANCE STATUS DECREASED [None]
  - PLATELET COUNT DECREASED [None]
  - BACK PAIN [None]
  - UPPER RESPIRATORY TRACT INFLAMMATION [None]
  - DECREASED APPETITE [None]
  - PAIN IN EXTREMITY [None]
